FAERS Safety Report 9648078 (Version 1)
Quarter: 2013Q4

REPORT INFORMATION
  Report Type: Spontaneous
  Country: AT (occurrence: AT)
  Receive Date: 20131028
  Receipt Date: 20131028
  Transmission Date: 20140711
  Serious: Yes (Other)
  Sender: FDA-Public Use
  Company Number: AT-JNJFOC-20131008617

PATIENT
  Age: 21 Year
  Sex: Male
  Weight: 80 kg

DRUGS (15)
  1. RISPERDAL [Suspect]
     Indication: PRODUCT USED FOR UNKNOWN INDICATION
     Dosage: 8
     Route: 065
     Dates: start: 20130518, end: 20130526
  2. RISPERDAL [Suspect]
     Indication: PRODUCT USED FOR UNKNOWN INDICATION
     Dosage: 6
     Route: 065
     Dates: start: 20130513, end: 20130517
  3. DEPAKINE [Suspect]
     Indication: PRODUCT USED FOR UNKNOWN INDICATION
     Dosage: 2500.0
     Route: 065
     Dates: start: 20130518, end: 20130520
  4. DEPAKINE [Suspect]
     Indication: PRODUCT USED FOR UNKNOWN INDICATION
     Dosage: 2000.0
     Route: 065
     Dates: start: 20130516, end: 20130517
  5. DEPAKINE [Suspect]
     Indication: PRODUCT USED FOR UNKNOWN INDICATION
     Dosage: 1000
     Route: 065
     Dates: start: 20130515, end: 20130515
  6. DEPAKINE [Suspect]
     Indication: PRODUCT USED FOR UNKNOWN INDICATION
     Dosage: 1500
     Route: 065
     Dates: start: 20130513, end: 20130513
  7. RIVOTRIL [Suspect]
     Indication: PRODUCT USED FOR UNKNOWN INDICATION
     Route: 042
     Dates: start: 20130515, end: 20130516
  8. RIVOTRIL [Suspect]
     Indication: PRODUCT USED FOR UNKNOWN INDICATION
     Route: 042
     Dates: start: 20130517, end: 20130519
  9. TEMESTA [Suspect]
     Indication: PRODUCT USED FOR UNKNOWN INDICATION
     Dosage: 5
     Route: 065
     Dates: start: 20130515, end: 20130515
  10. TEMESTA [Suspect]
     Indication: PRODUCT USED FOR UNKNOWN INDICATION
     Dosage: 7.5
     Route: 065
     Dates: start: 20130514, end: 20130514
  11. TEMESTA [Suspect]
     Indication: PRODUCT USED FOR UNKNOWN INDICATION
     Dosage: 8.5
     Route: 065
     Dates: start: 20130513, end: 20130513
  12. DEPAKINE [Suspect]
     Indication: PRODUCT USED FOR UNKNOWN INDICATION
     Dosage: 400
     Route: 042
     Dates: start: 20130514, end: 20130514
  13. DEPAKINE [Suspect]
     Indication: PRODUCT USED FOR UNKNOWN INDICATION
     Dosage: 800
     Route: 042
     Dates: start: 20130515, end: 20130515
  14. CISORDINOL ACUTARD [Suspect]
     Indication: PRODUCT USED FOR UNKNOWN INDICATION
     Dosage: 150
     Route: 065
     Dates: start: 20130514, end: 20130514
  15. ZYPREXA [Suspect]
     Indication: PRODUCT USED FOR UNKNOWN INDICATION
     Route: 065
     Dates: start: 20130512

REACTIONS (3)
  - Urinary retention [Recovered/Resolved]
  - Cor pulmonale [Unknown]
  - Fall [Unknown]
